FAERS Safety Report 10056294 (Version 1)
Quarter: 2014Q2

REPORT INFORMATION
  Report Type: Report from Study
  Country: BR (occurrence: BR)
  Receive Date: 20140403
  Receipt Date: 20140403
  Transmission Date: 20141212
  Serious: Yes (Other)
  Sender: FDA-Public Use
  Company Number: PHHY2014BR038823

PATIENT
  Age: 5 Year
  Sex: Female
  Weight: 20.5 kg

DRUGS (4)
  1. EXJADE [Suspect]
     Indication: CONGENITAL APLASTIC ANAEMIA
     Dosage: 500 MG, DAILY
  2. EXJADE [Suspect]
     Dosage: 250 MG, DAILY
  3. EXJADE [Suspect]
     Dosage: 125 MG, EVERY OTHER DAY
     Dates: end: 20140307
  4. LABEL [Concomitant]
     Indication: ABDOMINAL DISCOMFORT
     Dosage: 3 ML, BID DAY AND NIGHT

REACTIONS (4)
  - Viral infection [Unknown]
  - Liver disorder [Unknown]
  - Aspartate aminotransferase abnormal [Unknown]
  - Alanine aminotransferase abnormal [Unknown]
